FAERS Safety Report 5232253-4 (Version None)
Quarter: 2007Q1

REPORT INFORMATION
  Report Type: 
  Country: None (occurrence: None)
  Receive Date: 20070205
  Receipt Date: 20070119
  Transmission Date: 20070707
  Serious: Yes (Hospitalization)
  Sender: FDA-Public Use
  Company Number: DSA_28556_2006

PATIENT
  Age: 49 Year
  Sex: Male

DRUGS (4)
  1. ATIVAN [Suspect]
     Dosage: 2.5 MG TID PO
     Route: 048
     Dates: end: 20060101
  2. ATIVAN [Suspect]
     Dosage: DF PO
     Route: 048
     Dates: start: 20060101
  3. ATIVAN [Suspect]
     Dosage: 2.5 MG QID PO
     Route: 048
     Dates: start: 19850101
  4. ZOPICLONE [Concomitant]

REACTIONS (2)
  - BLOOD POTASSIUM INCREASED [None]
  - EPILEPSY [None]
